FAERS Safety Report 9636005 (Version 5)
Quarter: 2013Q4

REPORT INFORMATION
  Report Type: Spontaneous
  Country: US (occurrence: US)
  Receive Date: 20131021
  Receipt Date: 20131205
  Transmission Date: 20140711
  Serious: Yes (Death, Hospitalization, Other)
  Sender: FDA-Public Use
  Company Number: US-GILEAD-2013-0085739

PATIENT
  Age: 72 Year
  Sex: Male
  Weight: 126.8 kg

DRUGS (2)
  1. LETAIRIS [Suspect]
     Indication: PULMONARY ARTERIAL HYPERTENSION
     Dosage: 5 MG, UNK
     Dates: start: 20130820
  2. LETAIRIS [Suspect]
     Dosage: 5 MG, UNK

REACTIONS (5)
  - Cardiac failure congestive [Unknown]
  - Lung disorder [Recovering/Resolving]
  - Mechanical ventilation [Unknown]
  - Tracheostomy [Unknown]
  - Death [Fatal]
